FAERS Safety Report 16861464 (Version 2)
Quarter: 2019Q4

REPORT INFORMATION
  Report Type: Spontaneous
  Country: US (occurrence: US)
  Receive Date: 20190927
  Receipt Date: 20191101
  Transmission Date: 20200122
  Serious: No
  Sender: FDA-Public Use
  Company Number: US-ASTRAZENECA-2019SF22003

PATIENT
  Age: 1095 Month
  Sex: Male

DRUGS (5)
  1. ASPIRIN. [Concomitant]
     Active Substance: ASPIRIN
     Route: 048
  2. NIFEDIPINE. [Concomitant]
     Active Substance: NIFEDIPINE
     Route: 048
  3. BRILINTA [Suspect]
     Active Substance: TICAGRELOR
     Indication: STENT PLACEMENT
     Route: 048
     Dates: start: 201903
  4. LOVASTATIN. [Concomitant]
     Active Substance: LOVASTATIN
     Route: 048
  5. FENOFIBRATE. [Concomitant]
     Active Substance: FENOFIBRATE
     Indication: MYOCARDIAL INFARCTION
     Route: 048

REACTIONS (5)
  - Arthropathy [Unknown]
  - Visual impairment [Unknown]
  - Rash macular [Unknown]
  - Circumstance or information capable of leading to medication error [Unknown]
  - Mental impairment [Unknown]

NARRATIVE: CASE EVENT DATE: 201908
